FAERS Safety Report 8677354 (Version 2)
Quarter: 2016Q1

REPORT INFORMATION
  Report Type: Spontaneous
  Country: AT (occurrence: AT)
  Receive Date: 20120723
  Receipt Date: 20160203
  Transmission Date: 20160526
  Serious: Yes (Hospitalization, Other)
  Sender: FDA-Public Use
  Company Number: AT-BRISTOL-MYERS SQUIBB COMPANY-16735326

PATIENT
  Age: 62 Year
  Sex: Male
  Weight: 85 kg

DRUGS (2)
  1. TASIGNA [Suspect]
     Active Substance: NILOTINIB
     Indication: CHRONIC MYELOID LEUKAEMIA
     Dosage: 200 MG, UNK
     Route: 065
  2. SPRYCEL [Suspect]
     Active Substance: DASATINIB
     Indication: CHRONIC MYELOID LEUKAEMIA
     Dosage: 70MG 1-0-1   RED TO 100 MG 1-0-0   50MG 1-0-0 INTER,   RESTA APR08 WITH DOSAGE 50MG 1/2-0-1/2
     Route: 065
     Dates: start: 200705

REACTIONS (9)
  - Cough [Recovering/Resolving]
  - Folliculitis [Recovering/Resolving]
  - Dyspnoea [Recovering/Resolving]
  - Fatigue [Recovering/Resolving]
  - Off label use [Unknown]
  - Pneumonia [Recovered/Resolved]
  - Bronchitis [Recovering/Resolving]
  - Rash [Recovering/Resolving]
  - Lung disorder [Unknown]

NARRATIVE: CASE EVENT DATE: 200708
